FAERS Safety Report 9728075 (Version 3)
Quarter: 2013Q4

REPORT INFORMATION
  Report Type: Report from Study
  Country: US (occurrence: US)
  Receive Date: 20131204
  Receipt Date: 20131230
  Transmission Date: 20140711
  Serious: Yes (Other)
  Sender: FDA-Public Use
  Company Number: PHEH2013US024975

PATIENT
  Age: 38 Year
  Sex: Female
  Weight: 73 kg

DRUGS (14)
  1. AFINITOR [Suspect]
     Indication: ASTROCYTOMA, LOW GRADE
     Dosage: 10 MG, QOD
     Dates: start: 20131013
  2. AFINITOR [Suspect]
     Indication: ANGIOMYOLIPOMA
     Dosage: 10 MG, QD
     Route: 048
     Dates: start: 20131030
  3. AFINITOR [Suspect]
     Dosage: 10 MG, QOD
     Dates: start: 20131127
  4. AFINITOR [Suspect]
     Dosage: 10 MG, QD
     Dates: end: 20131204
  5. CARBATROL [Concomitant]
     Indication: CONVULSION
     Dosage: 300 MG, BID
     Route: 048
  6. LAMICTAL [Concomitant]
     Indication: CONVULSION
     Dosage: 200 MG, BID
     Route: 048
  7. PHENOBARBITAL [Concomitant]
     Indication: CONVULSION
     Dosage: 30 MG IN AM AND 60 MG IN PM
     Route: 048
  8. VITAMIN D3 [Concomitant]
     Indication: CONVULSION
     Dosage: 3000 IU, 3 TIMES A WEEK
     Route: 048
  9. MULTI-VIT [Concomitant]
  10. IBANDRONATE [Concomitant]
     Indication: OSTEOPOROSIS
     Dosage: 150 MG, QMO
     Route: 048
     Dates: end: 20131220
  11. MEDROXYPROGESTERON [Concomitant]
     Indication: HYPERPLASIA
     Dosage: 10 MG, UNK
     Route: 048
  12. CALCIUM [Concomitant]
     Indication: MINERAL SUPPLEMENTATION
     Dosage: UNK
  13. VITAMIN D [Concomitant]
     Dosage: 1000 IU, QD
  14. LEVOTHYROXINE NA [Concomitant]
     Dosage: 1 DF, QD
     Route: 048
     Dates: start: 20131022

REACTIONS (8)
  - Motor dysfunction [Not Recovered/Not Resolved]
  - Sluggishness [Not Recovered/Not Resolved]
  - Gait disturbance [Not Recovered/Not Resolved]
  - Blood thyroid stimulating hormone increased [Unknown]
  - Hypersomnia [Not Recovered/Not Resolved]
  - Posture abnormal [Not Recovered/Not Resolved]
  - Fatigue [Not Recovered/Not Resolved]
  - Lethargy [Recovering/Resolving]
